FAERS Safety Report 20504670 (Version 1)
Quarter: 2022Q1

REPORT INFORMATION
  Report Type: Other
  Country: CZ (occurrence: CZ)
  Receive Date: 20220223
  Receipt Date: 20220223
  Transmission Date: 20220423
  Serious: Yes (Hospitalization)
  Sender: FDA-Public Use
  Company Number: CZ-CELLTRION INC.-2022CZ001750

PATIENT

DRUGS (18)
  1. RITUXIMAB [Suspect]
     Active Substance: RITUXIMAB
     Indication: Follicular lymphoma
     Dosage: 375 MG/M2, QD (REGIMEN 1; PHARMACEUTICAL DOSE FORM: 124)
     Route: 041
     Dates: start: 20211203, end: 20211203
  2. RITUXIMAB [Suspect]
     Active Substance: RITUXIMAB
     Dosage: 375 MG/M2, QD (REGIMEN 2; PHARMACEUTICAL DOSE FORM: 124)
     Route: 041
     Dates: start: 20211210, end: 20211210
  3. RITUXIMAB [Suspect]
     Active Substance: RITUXIMAB
     Dosage: 375 MG/M2, QD (REGIMEN 3; PHARMACEUTICAL DOSE FORM: 124)
     Route: 041
     Dates: start: 20211217, end: 20211217
  4. RITUXIMAB [Suspect]
     Active Substance: RITUXIMAB
     Dosage: 375 MG/M2, QD (REGIMEN 4; PHARMACEUTICAL DOSE FORM: 124)
     Route: 041
     Dates: start: 20220110, end: 20220110
  5. RITUXIMAB [Suspect]
     Active Substance: RITUXIMAB
     Dosage: UNK
     Route: 065
     Dates: start: 20170310, end: 20170723
  6. EPCORITAMAB [Suspect]
     Active Substance: EPCORITAMAB
     Indication: Follicular lymphoma
     Dosage: 48 MILLIGRAM, 1/WEEK (PHARMACEUTICAL DOSE FORM: 124)
     Route: 058
     Dates: start: 20211217, end: 20220110
  7. EPCORITAMAB [Suspect]
     Active Substance: EPCORITAMAB
     Dosage: 48 MILLIGRAM, 1/WEEK (DOSAGE TEXT: 375MG/M2; PHARMACEUTICAL DOSE FORM: 124)
     Route: 041
     Dates: start: 20220110, end: 20220110
  8. EPCORITAMAB [Suspect]
     Active Substance: EPCORITAMAB
     Dosage: 0.16 MILLIGRAM, BID (PRIMARY DOSE; PHARMAEUTICAL DOSE FORM: 120)
     Route: 058
     Dates: start: 20211203, end: 20211203
  9. EPCORITAMAB [Suspect]
     Active Substance: EPCORITAMAB
     Dosage: 0.8 MILLIGRAM, BID (INTERMIDIATE DOSE; PHARMACEUTICAL DOSE FORM: 124)
     Route: 058
     Dates: start: 20211210, end: 20211210
  10. EPCORITAMAB [Suspect]
     Active Substance: EPCORITAMAB
     Dosage: 48 MILLIGRAM
     Route: 065
     Dates: start: 20220127
  11. LENALIDOMIDE [Suspect]
     Active Substance: LENALIDOMIDE
     Indication: Follicular lymphoma
     Dosage: 20 MILLIGRAM, QD (PHARMACEUTICAL DOSE FORM: 5)
     Route: 048
     Dates: start: 20211207, end: 20211227
  12. CARSAXA [Concomitant]
     Indication: Product used for unknown indication
     Dosage: UNK
     Route: 048
     Dates: start: 20210407
  13. ACYCLOVIR [Concomitant]
     Active Substance: ACYCLOVIR
     Indication: Product used for unknown indication
     Dosage: UNK
     Route: 048
     Dates: start: 20220103
  14. BISULEPIN [Concomitant]
     Active Substance: BISULEPIN
     Indication: Product used for unknown indication
     Dosage: 1 UNIT
     Route: 041
     Dates: start: 20220110, end: 20220110
  15. DEXAMETHASONE [Concomitant]
     Active Substance: DEXAMETHASONE
     Indication: Prophylaxis
     Dosage: 4 MILLIGRAM
     Route: 048
     Dates: start: 20220111, end: 20220114
  16. OMEPRAZOLE [Concomitant]
     Active Substance: OMEPRAZOLE
     Indication: Product used for unknown indication
     Dosage: UNK
     Route: 048
     Dates: start: 20211203
  17. ACETAMINOPHEN [Concomitant]
     Active Substance: ACETAMINOPHEN
     Indication: Product used for unknown indication
     Dosage: 1000 MILLIGRAM
     Route: 048
     Dates: start: 20220110, end: 20220110
  18. ATORVASTATIN CALCIUM [Concomitant]
     Active Substance: ATORVASTATIN CALCIUM
     Indication: Product used for unknown indication
     Dosage: UNK
     Route: 048
     Dates: start: 20210407

REACTIONS (1)
  - Device occlusion [Recovered/Resolved]

NARRATIVE: CASE EVENT DATE: 20220119
